FAERS Safety Report 7926673-4 (Version None)
Quarter: 2011Q4

REPORT INFORMATION
  Report Type: 
  Country: None (occurrence: None)
  Receive Date: 20111116
  Receipt Date: 20111107
  Transmission Date: 20120403
  Serious: Yes (Congenital Anomaly)
  Sender: FDA-Public Use
  Company Number: 1000025339

PATIENT
  Sex: Female

DRUGS (1)
  1. LEXAPRO [Suspect]
     Dosage: TRANSPLACENTAL
     Route: 064
     Dates: end: 19961001

REACTIONS (7)
  - PATENT DUCTUS ARTERIOSUS [None]
  - BICUSPID AORTIC VALVE [None]
  - VENTRICULAR SEPTAL DEFECT [None]
  - MATERNAL DRUGS AFFECTING FOETUS [None]
  - AORTIC STENOSIS [None]
  - SPINA BIFIDA [None]
  - CONGENITAL HYDROCEPHALUS [None]
